FAERS Safety Report 9460116 (Version 1)
Quarter: 2013Q3

REPORT INFORMATION
  Report Type: Spontaneous
  Country: IN (occurrence: IN)
  Receive Date: 20130815
  Receipt Date: 20130815
  Transmission Date: 20140515
  Serious: Yes (Other)
  Sender: FDA-Public Use
  Company Number: PHHY2013IN085304

PATIENT
  Age: 15 Year
  Sex: Female

DRUGS (9)
  1. CYTARABINE [Suspect]
     Indication: ACUTE MYELOID LEUKAEMIA
  2. ISONIAZID [Suspect]
     Indication: TUBERCULOSIS
  3. DAUNORUBICIN [Suspect]
     Indication: ACUTE MYELOID LEUKAEMIA
  4. ANTIBIOTICS [Concomitant]
     Indication: PSEUDOMONAL BACTERAEMIA
  5. ANTIFUNGAL DRUGS [Concomitant]
  6. RIFAMPICIN [Concomitant]
     Indication: TUBERCULOSIS
  7. PYRAZINAMIDE [Concomitant]
     Indication: TUBERCULOSIS
  8. ETHAMBUTOL [Concomitant]
     Indication: TUBERCULOSIS
  9. LEVOFLOXACIN [Concomitant]

REACTIONS (11)
  - Infectious pleural effusion [Unknown]
  - Pneumonia [Unknown]
  - Mycobacterial infection [Unknown]
  - Chest pain [Unknown]
  - Pleuritic pain [Unknown]
  - Pyrexia [Unknown]
  - Dyspnoea [Unknown]
  - Leukopenia [Unknown]
  - Thrombocytopenia [Unknown]
  - Neutropenia [Unknown]
  - Hepatic function abnormal [Unknown]
